FAERS Safety Report 7622307-7 (Version None)
Quarter: 2011Q3

REPORT INFORMATION
  Report Type: 
  Country: None (occurrence: None)
  Receive Date: 20110711
  Receipt Date: 20110624
  Transmission Date: 20111222
  Serious: Yes (Life-Threatening, Hospitalization)
  Sender: FDA-Public Use
  Company Number: TCI2011A03539

PATIENT
  Age: 61 Year
  Sex: Male

DRUGS (15)
  1. RABEPRAZOLE SODIUM [Concomitant]
  2. LIPITOR [Concomitant]
  3. FLUVASTATIN [Concomitant]
  4. AMLODIN OD (AMLODIPINE BESILATE) [Concomitant]
  5. FAMOTIDINE [Concomitant]
  6. TICLOPIDINE HCL [Concomitant]
  7. AMARYL [Concomitant]
  8. OLMESARTAN MEDOXOMIL [Concomitant]
  9. LOSARTAN POTASSIUM [Concomitant]
  10. ACTOS [Suspect]
     Indication: DIABETES MELLITUS
     Dosage: SEE IMAGE
     Route: 048
     Dates: start: 20070822, end: 20090623
  11. ACTOS [Suspect]
     Indication: DIABETES MELLITUS
     Dosage: SEE IMAGE
     Route: 048
     Dates: start: 20090624, end: 20110111
  12. ACTOS [Suspect]
     Indication: DIABETES MELLITUS
     Dosage: SEE IMAGE
     Route: 048
     Dates: start: 20060419, end: 20070821
  13. ACTOS [Suspect]
     Indication: DIABETES MELLITUS
     Dosage: SEE IMAGE
     Route: 048
     Dates: start: 20110112
  14. GLIMICRON HA (GLICLAZIDE) [Concomitant]
  15. BASEN OD TABLETS 0.2 (VOGLIBOSE) [Concomitant]

REACTIONS (1)
  - BLADDER CANCER [None]
